FAERS Safety Report 5663799-2 (Version None)
Quarter: 2008Q1

REPORT INFORMATION
  Report Type: 
  Country: None (occurrence: None)
  Receive Date: 20080310
  Receipt Date: 20080227
  Transmission Date: 20080703
  Serious: Yes (Disabling)
  Sender: FDA-Public Use
  Company Number: 2008US-12706

PATIENT
  Age: 82 Year
  Sex: Female
  Weight: 65.5 kg

DRUGS (10)
  1. ISOPTIN SR [Suspect]
     Indication: HYPERTENSION
     Dosage: 120 MG, ORAL; ORAL
     Route: 048
     Dates: start: 20070726, end: 20071120
  2. ISOPTIN SR [Suspect]
     Indication: HYPERTENSION
     Dosage: 120 MG, ORAL; ORAL
     Route: 048
     Dates: start: 20071101, end: 20080104
  3. VERAPAMIL [Suspect]
     Indication: HYPERTENSION
     Dosage: 280 MG, QD, PRN, ORAL; 360 MG, QD PRN, ORAL; 240 MG, 1 IN 1 DAY, ORAL
     Route: 048
     Dates: start: 20061013, end: 20070726
  4. VERAPAMIL [Suspect]
     Indication: HYPERTENSION
     Dosage: 280 MG, QD, PRN, ORAL; 360 MG, QD PRN, ORAL; 240 MG, 1 IN 1 DAY, ORAL
     Route: 048
     Dates: start: 20061013, end: 20070726
  5. VERAPAMIL [Suspect]
     Indication: HYPERTENSION
     Dosage: 280 MG, QD, PRN, ORAL; 360 MG, QD PRN, ORAL; 240 MG, 1 IN 1 DAY, ORAL
     Route: 048
     Dates: start: 20080104, end: 20080125
  6. PARACETAMOL UNKNOWN [Concomitant]
  7. OMEPRAZOLE UNKNOWN [Concomitant]
  8. SPIRONOLACTONE UNKNOWN [Concomitant]
  9. SPIRONOLACTONE UNKNOWN [Concomitant]
  10. FUROSEMIDE [Concomitant]

REACTIONS (3)
  - MUSCULOSKELETAL STIFFNESS [None]
  - MYALGIA [None]
  - PHARMACEUTICAL PRODUCT COMPLAINT [None]
